FAERS Safety Report 18818585 (Version 1)
Quarter: 2021Q1

REPORT INFORMATION
  Report Type: Spontaneous
  Country: CN (occurrence: CN)
  Receive Date: 20210201
  Receipt Date: 20210201
  Transmission Date: 20210419
  Serious: Yes (Hospitalization, Other)
  Sender: FDA-Public Use
  Company Number: CN-BAYER-2021-044199

PATIENT
  Age: 76 Year
  Sex: Male
  Weight: 51 kg

DRUGS (7)
  1. GLICLAZIDE [Suspect]
     Active Substance: GLICLAZIDE
     Indication: TYPE 2 DIABETES MELLITUS
     Dosage: 60 MG, QD
     Route: 048
     Dates: start: 20201115, end: 20210118
  2. MECOBALAMINE [Concomitant]
     Active Substance: METHYLCOBALAMIN
  3. PREGABALIN. [Concomitant]
     Active Substance: PREGABALIN
  4. LEVEMIR [Concomitant]
     Active Substance: INSULIN DETEMIR
  5. GLUCOBAY [Suspect]
     Active Substance: ACARBOSE
     Indication: TYPE 2 DIABETES MELLITUS
     Dosage: 0.1 G, TID
     Route: 048
     Dates: start: 20201115, end: 20210118
  6. NOVORAPID [Concomitant]
     Active Substance: INSULIN ASPART
  7. AN NEI ZHEN [AMLODIPINE BESILATE] [Concomitant]

REACTIONS (9)
  - Platelet count decreased [Recovering/Resolving]
  - Urine flow decreased [Recovering/Resolving]
  - Asthenia [Recovering/Resolving]
  - Generalised oedema [Recovering/Resolving]
  - Acute kidney injury [Recovering/Resolving]
  - Refraction disorder [None]
  - Dacryostenosis acquired [None]
  - Blood urine present [Recovering/Resolving]
  - Decreased appetite [Recovering/Resolving]

NARRATIVE: CASE EVENT DATE: 20210117
